FAERS Safety Report 13027456 (Version 1)
Quarter: 2016Q4

REPORT INFORMATION
  Report Type: Spontaneous
  Country: US (occurrence: US)
  Receive Date: 20161214
  Receipt Date: 20161214
  Transmission Date: 20170207
  Serious: Yes (Other)
  Sender: FDA-Public Use
  Company Number: US-PFIZER INC-2016348814

PATIENT
  Age: 52 Year
  Sex: Male
  Weight: 118 kg

DRUGS (2)
  1. CYTOSAR [Concomitant]
     Active Substance: CYTARABINE
     Dosage: 240 MG IN NS 1000 ML INFUSION, 41.7/ML/HR
     Route: 042
     Dates: start: 20160220, end: 20160221
  2. IDAMYCIN [Suspect]
     Active Substance: IDARUBICIN HYDROCHLORIDE
     Dosage: 29 MG IN 29 ML IVPB ONCE OVER 15 MINUTES
     Route: 042
     Dates: start: 20160220, end: 20160220

REACTIONS (1)
  - Pancytopenia [Unknown]
